FAERS Safety Report 15634367 (Version 1)
Quarter: 2018Q4

REPORT INFORMATION
  Report Type: Spontaneous
  Country: US (occurrence: US)
  Receive Date: 20181119
  Receipt Date: 20181119
  Transmission Date: 20190205
  Serious: No
  Sender: FDA-Public Use
  Company Number: US-PFIZER INC-2018470825

PATIENT
  Age: 19 Year
  Sex: Female

DRUGS (1)
  1. GENOTROPIN MQ [Suspect]
     Active Substance: SOMATROPIN
     Indication: DYSPLASIA
     Dosage: 0.8 MG, DAILY

REACTIONS (6)
  - Blood glucose increased [Unknown]
  - Blood triglycerides increased [Unknown]
  - Blood insulin increased [Unknown]
  - Insulin C-peptide increased [Unknown]
  - Product use in unapproved indication [Unknown]
  - High density lipoprotein decreased [Unknown]

NARRATIVE: CASE EVENT DATE: 20161229
